FAERS Safety Report 12616177 (Version 1)
Quarter: 2016Q3

REPORT INFORMATION
  Report Type: Other
  Country: US (occurrence: US)
  Receive Date: 20160802
  Receipt Date: 20160802
  Transmission Date: 20161109
  Serious: Yes (Other)
  Sender: FDA-Public Use
  Company Number: US-TOLMAR INC.-1055787

PATIENT
  Age: 63 Year
  Sex: Male

DRUGS (1)
  1. KETOCONAZOLE SHAMPOO, 2% [Suspect]
     Active Substance: KETOCONAZOLE
     Indication: SEBORRHOEIC DERMATITIS
     Route: 061

REACTIONS (5)
  - Skin plaque [Recovered/Resolved]
  - Face oedema [Recovered/Resolved]
  - Dermatitis contact [Recovered/Resolved]
  - Induration [Recovered/Resolved]
  - Pruritus [Recovered/Resolved]
